FAERS Safety Report 22911533 (Version 2)
Quarter: 2023Q4

REPORT INFORMATION
  Report Type: Spontaneous
  Country: GB (occurrence: GB)
  Receive Date: 20230906
  Receipt Date: 20231021
  Transmission Date: 20240110
  Serious: Yes (Hospitalization)
  Sender: FDA-Public Use
  Company Number: GB-ABBVIE-5395009

PATIENT
  Age: 22 Year
  Sex: Female
  Weight: 76 kg

DRUGS (2)
  1. UPADACITINIB [Suspect]
     Active Substance: UPADACITINIB
     Indication: Crohn^s disease
     Dosage: LAST ADMIN DATE 2023
     Route: 048
     Dates: start: 20231001
  2. UPADACITINIB [Suspect]
     Active Substance: UPADACITINIB
     Indication: Crohn^s disease
     Route: 048
     Dates: start: 20230710, end: 20230815

REACTIONS (5)
  - Myocarditis bacterial [Recovered/Resolved]
  - Chills [Unknown]
  - Crohn^s disease [Unknown]
  - Hypervolaemia [Unknown]
  - Infection [Unknown]

NARRATIVE: CASE EVENT DATE: 20230101
